FAERS Safety Report 12690104 (Version 2)
Quarter: 2016Q4

REPORT INFORMATION
  Report Type: Spontaneous
  Country: CA (occurrence: CA)
  Receive Date: 20160826
  Receipt Date: 20161003
  Transmission Date: 20170207
  Serious: Yes (Other)
  Sender: FDA-Public Use
  Company Number: CA-REGENERON PHARMACEUTICALS, INC.-2016-20750

PATIENT

DRUGS (2)
  1. EYLEA [Suspect]
     Active Substance: AFLIBERCEPT
     Indication: NEOVASCULAR AGE-RELATED MACULAR DEGENERATION
     Dosage: UNK, Q4WK
     Route: 031
     Dates: start: 20160308
  2. EYLEA [Suspect]
     Active Substance: AFLIBERCEPT
     Dosage: TOTAL OF 7 OS INJECTIONS
     Route: 031
     Dates: start: 20160727

REACTIONS (5)
  - Photopsia [Unknown]
  - Visual field defect [Unknown]
  - Visual acuity reduced [Unknown]
  - Foreign body sensation in eyes [Unknown]
  - Eye pain [Not Recovered/Not Resolved]

NARRATIVE: CASE EVENT DATE: 20160406
